FAERS Safety Report 8761635 (Version 1)
Quarter: 2012Q4

REPORT INFORMATION
  Report Type: 
  Country: AT (occurrence: AT)
  Receive Date: 20120828
  Receipt Date: 20120828
  Transmission Date: 20130627
  Serious: Yes (Other)
  Sender: FDA-Public Use
  Company Number: AT-BAXTER-2012BAX015077

PATIENT
  Sex: Male

DRUGS (1)
  1. BEBULIN STIM4 [Suspect]
     Indication: HEMOPHILIA B (FACTOR IX)
     Route: 065
     Dates: start: 198401, end: 198403

REACTIONS (1)
  - HIV infection [Not Recovered/Not Resolved]
